FAERS Safety Report 12066522 (Version 2)
Quarter: 2016Q2

REPORT INFORMATION
  Report Type: Spontaneous
  Country: US (occurrence: US)
  Receive Date: 20160211
  Receipt Date: 20160415
  Transmission Date: 20160815
  Serious: Yes (Death, Other)
  Sender: FDA-Public Use
  Company Number: US-ENDO PHARMACEUTICALS INC.-2016-001002

PATIENT
  Age: 39 Year
  Sex: Male
  Weight: 88.53 kg

DRUGS (13)
  1. DELATESTRYL [Suspect]
     Active Substance: TESTOSTERONE ENANTHATE
     Route: 030
     Dates: start: 201011, end: 201103
  2. TESTOSTERONE GEL [Suspect]
     Active Substance: TESTOSTERONE
     Indication: ANDROGEN REPLACEMENT THERAPY
     Route: 065
     Dates: start: 200609, end: 200703
  3. DELATESTRYL [Suspect]
     Active Substance: TESTOSTERONE ENANTHATE
     Route: 030
     Dates: start: 200912, end: 201006
  4. TESTOSTERONE PATCH [Suspect]
     Active Substance: TESTOSTERONE
     Route: 065
     Dates: start: 200701, end: 200707
  5. TESTOSTERONE PATCH [Suspect]
     Active Substance: TESTOSTERONE
     Route: 065
     Dates: start: 200808, end: 200902
  6. DELATESTRYL [Suspect]
     Active Substance: TESTOSTERONE ENANTHATE
     Indication: ANDROGEN REPLACEMENT THERAPY
     Route: 030
     Dates: start: 199905, end: 2003
  7. LISINOPRIL. [Concomitant]
     Active Substance: LISINOPRIL
     Indication: HYPERTENSION
     Route: 065
     Dates: start: 1998, end: 2011
  8. TENOFOVIR [Concomitant]
     Active Substance: TENOFOVIR
     Indication: HIV TEST POSITIVE
     Route: 065
     Dates: start: 200711, end: 2011
  9. ETRAVIRINE [Concomitant]
     Active Substance: ETRAVIRINE
     Indication: HIV TEST POSITIVE
     Route: 065
     Dates: start: 2008, end: 2011
  10. TESTOSTERONE PATCH [Suspect]
     Active Substance: TESTOSTERONE
     Indication: ANDROGEN REPLACEMENT THERAPY
     Route: 065
     Dates: start: 199804, end: 199805
  11. TESTOSTERONE CYPIONATE. [Suspect]
     Active Substance: TESTOSTERONE CYPIONATE
     Indication: ANDROGEN REPLACEMENT THERAPY
     Route: 065
     Dates: start: 199509, end: 1998
  12. ACYCLOVIR. [Concomitant]
     Active Substance: ACYCLOVIR
     Indication: HERPES VIRUS INFECTION
     Route: 065
     Dates: start: 1994, end: 2011
  13. EMTRICITABINE [Concomitant]
     Active Substance: EMTRICITABINE
     Indication: HIV TEST POSITIVE
     Route: 065
     Dates: start: 1998, end: 2011

REACTIONS (3)
  - Cardiac arrest [Fatal]
  - Myocardial infarction [Fatal]
  - Cardiac failure congestive [Unknown]

NARRATIVE: CASE EVENT DATE: 200206
